FAERS Safety Report 9506020 (Version 1)
Quarter: 2013Q1

REPORT INFORMATION
  Report Type: Spontaneous
  Country: US (occurrence: None)
  Receive Date: 20130206
  Receipt Date: 20130206
  Transmission Date: 20140127
  Serious: Yes (Hospitalization)
  Sender: FDA-Public Use
  Company Number: PHEH2012US004582

PATIENT
  Age: 70 Year
  Sex: Female

DRUGS (7)
  1. LAMPRENE [Suspect]
     Dates: end: 20120216
  2. AZITHROMYCIN [Suspect]
     Dates: end: 20120216
  3. AVELOX [Suspect]
     Dates: end: 20120216
  4. CORGARD (NADOLOL) [Concomitant]
  5. PREMARIN (ESTROGENS CONJUGATED) [Concomitant]
  6. THYROXINE (LEVOTHYROXINE SODIUM) [Concomitant]
  7. ZEGERID (OMEPRAZOLE, SODIUM BICARBONATE) [Concomitant]

REACTIONS (4)
  - Nausea [None]
  - Vomiting [None]
  - Asthenia [None]
  - Fatigue [None]
